FAERS Safety Report 6761542-7 (Version None)
Quarter: 2010Q2

REPORT INFORMATION
  Report Type: 
  Country: None (occurrence: None)
  Receive Date: 20100608
  Receipt Date: 20100604
  Transmission Date: 20101027
  Serious: Yes (Other)
  Sender: FDA-Public Use
  Company Number: US-BRISTOL-MYERS SQUIBB COMPANY-15107386

PATIENT
  Age: 6 Year
  Sex: Male
  Weight: 34 kg

DRUGS (7)
  1. DASATINIB [Suspect]
     Indication: ACUTE LYMPHOCYTIC LEUKAEMIA
     Dosage: DAYS 1 - 14 NO OF COURSE:3 LAST INF:17FEB10
     Route: 048
     Dates: start: 20091223
  2. ETOPOSIDE [Suspect]
     Indication: ACUTE LYMPHOCYTIC LEUKAEMIA
     Dosage: DAYS 1 - 5
     Route: 042
     Dates: start: 20091223, end: 20100118
  3. IFOSFAMIDE [Suspect]
     Indication: ACUTE LYMPHOCYTIC LEUKAEMIA
     Dosage: DAYS 1 - 5
     Route: 042
     Dates: start: 20091223, end: 20100118
  4. HYDROCORTISONE [Suspect]
     Indication: ACUTE LYMPHOCYTIC LEUKAEMIA
     Dosage: NO OF COURSE:3 DAY 1 LAST DOSE: 04FEB10
     Route: 037
     Dates: start: 20091223
  5. CYTARABINE [Suspect]
     Indication: ACUTE LYMPHOCYTIC LEUKAEMIA
     Dosage: ITT 16 - 30 MG DAY 1 IV 3000 MG/M2 DAYS 2 + 3 NO OF COURSE:3 LAST INF:07FEB10
     Dates: start: 20091224
  6. METHOTREXATE [Suspect]
     Indication: ACUTE LYMPHOCYTIC LEUKAEMIA
     Dosage: 5445MG HDMTX IV AND 12MG ITT MTX NO OF COURSE:3 LAST INF:4FEB10
     Dates: start: 20091223
  7. DEXTROSE + SALINE [Suspect]
     Route: 042
     Dates: start: 20100206

REACTIONS (1)
  - HYPOKALAEMIA [None]
